FAERS Safety Report 22868551 (Version 2)
Quarter: 2025Q3

REPORT INFORMATION
  Report Type: Report from Study
  Country: EG (occurrence: EG)
  Receive Date: 20230825
  Receipt Date: 20250728
  Transmission Date: 20251021
  Serious: No
  Sender: SANDOZ
  Company Number: EG-SANDOZ-SDZ2023EG018294

PATIENT
  Age: 13 Year
  Sex: Female
  Weight: 44 kg

DRUGS (4)
  1. OMNITROPE [Suspect]
     Active Substance: SOMATROPIN
     Indication: Growth hormone deficiency
     Dosage: 1 MG, QD
     Route: 058
     Dates: start: 20230814
  2. Decal [Concomitant]
     Indication: Malnutrition
     Dosage: 5 CM, QD
     Route: 048
     Dates: end: 20230816
  3. Devarol [Concomitant]
     Indication: Vitamin D deficiency
     Route: 030
     Dates: start: 202307
  4. Maxical [Concomitant]
     Indication: Malnutrition
     Dosage: 1 TAB,QD
     Route: 048
     Dates: start: 20230816

REACTIONS (3)
  - Injection site haemorrhage [Recovered/Resolved]
  - Multiple use of single-use product [Not Recovered/Not Resolved]
  - Incorrect dose administered [Recovered/Resolved]

NARRATIVE: CASE EVENT DATE: 20230814
